FAERS Safety Report 4873548-3 (Version None)
Quarter: 2006Q1

REPORT INFORMATION
  Report Type: 
  Country: None (occurrence: None)
  Receive Date: 20060105
  Receipt Date: 20051005
  Transmission Date: 20060701
  Serious: Yes (Disabling)
  Sender: FDA-Public Use
  Company Number: US-MERCK-0510USA04422

PATIENT
  Age: 49 Year
  Sex: Male
  Weight: 93 kg

DRUGS (3)
  1. VIOXX [Suspect]
     Indication: ARTHRITIS
     Route: 048
     Dates: start: 20010510, end: 20040928
  2. VIOXX [Suspect]
     Route: 048
     Dates: start: 20010510, end: 20040928
  3. EXCEDRIN (ACETAMINOPHEN (+) CAFFEINE) [Concomitant]
     Route: 065

REACTIONS (6)
  - ANGINA PECTORIS [None]
  - CARDIOVASCULAR DISORDER [None]
  - HEPATOCELLULAR DAMAGE [None]
  - INTERVERTEBRAL DISC PROTRUSION [None]
  - RENAL PAIN [None]
  - THROMBOSIS [None]
